FAERS Safety Report 14900893 (Version 1)
Quarter: 2018Q2

REPORT INFORMATION
  Report Type: Spontaneous
  Country: US (occurrence: US)
  Receive Date: 20180516
  Receipt Date: 20180516
  Transmission Date: 20180711
  Serious: No
  Sender: FDA-Public Use
  Company Number: US-APOTEX-2017AP017678

PATIENT
  Age: 32 Year
  Sex: Female

DRUGS (4)
  1. TOPIRAMATE. [Suspect]
     Active Substance: TOPIRAMATE
     Indication: CLUSTER HEADACHE
  2. SUMATRIPTAN TABLETS USP [Suspect]
     Active Substance: SUMATRIPTAN
     Indication: POST-TRAUMATIC HEADACHE
     Route: 048
  3. TOPIRAMATE. [Suspect]
     Active Substance: TOPIRAMATE
     Indication: POST-TRAUMATIC HEADACHE
     Dosage: 50 MG, BID
     Route: 065
  4. SUMATRIPTAN TABLETS USP [Suspect]
     Active Substance: SUMATRIPTAN
     Indication: CLUSTER HEADACHE

REACTIONS (4)
  - Drug ineffective [Unknown]
  - Paraesthesia [Unknown]
  - Weight decreased [Unknown]
  - Chest discomfort [Unknown]
